FAERS Safety Report 9780121 (Version 1)
Quarter: 2013Q4

REPORT INFORMATION
  Report Type: Spontaneous
  Country: US (occurrence: US)
  Receive Date: 20131223
  Receipt Date: 20131223
  Transmission Date: 20140711
  Serious: Yes (Other)
  Sender: FDA-Public Use
  Company Number: US-PFIZER INC-2013366255

PATIENT
  Age: 43 Year
  Sex: Female
  Weight: 88.44 kg

DRUGS (2)
  1. PREMARIN [Suspect]
     Indication: HORMONE REPLACEMENT THERAPY
     Dosage: 0.9 MG, 1X/DAY
     Dates: start: 199812
  2. WELLBUTRIN [Concomitant]
     Indication: DEPRESSION
     Dosage: 150 MG, 1X/DAY

REACTIONS (1)
  - Gallbladder disorder [Unknown]
